FAERS Safety Report 10441106 (Version 1)
Quarter: 2014Q3

REPORT INFORMATION
  Report Type: Spontaneous
  Country: CA (occurrence: None)
  Receive Date: 20140908
  Receipt Date: 20140908
  Transmission Date: 20150326
  Serious: Yes (Death)
  Sender: FDA-Public Use
  Company Number: None

PATIENT
  Age: 20 Year
  Sex: Male
  Weight: 49.9 kg

DRUGS (2)
  1. TYLENOL [Concomitant]
     Active Substance: ACETAMINOPHEN
  2. NAPROXEN. [Suspect]
     Active Substance: NAPROXEN
     Indication: GOUT
     Dosage: 14 PILLS, TWICE DAILY, TAKEN BY MOUTH
     Route: 048
     Dates: start: 20140831, end: 20140901

REACTIONS (4)
  - Cardiac disorder [None]
  - Loss of consciousness [None]
  - Respiratory arrest [None]
  - Pulse absent [None]

NARRATIVE: CASE EVENT DATE: 20140906
